FAERS Safety Report 9365151 (Version 2)
Quarter: 2013Q3

REPORT INFORMATION
  Report Type: Spontaneous
  Country: DK (occurrence: DK)
  Receive Date: 20130624
  Receipt Date: 20130801
  Transmission Date: 20140515
  Serious: Yes (Other)
  Sender: FDA-Public Use
  Company Number: PHHY2013DK063171

PATIENT
  Age: 39 Year
  Sex: Female
  Weight: 100 kg

DRUGS (4)
  1. LAMOTRIGINE [Suspect]
     Indication: BIPOLAR II DISORDER
     Dosage: 100 MG, BID
     Route: 048
     Dates: start: 20121206, end: 20130422
  2. VENLAFAXIN [Concomitant]
     Indication: BIPOLAR II DISORDER
     Dates: start: 2005
  3. EDRONAX [Concomitant]
     Indication: BIPOLAR II DISORDER
     Dates: start: 2005
  4. LITHIUM CARBONATE [Concomitant]
     Indication: BIPOLAR II DISORDER
     Dates: start: 2005

REACTIONS (4)
  - Cognitive disorder [Recovered/Resolved]
  - Disturbance in attention [Recovered/Resolved]
  - Apathy [Recovered/Resolved]
  - Feeling abnormal [Recovered/Resolved]
